FAERS Safety Report 5048170-9 (Version None)
Quarter: 2006Q3

REPORT INFORMATION
  Report Type: 
  Country: None (occurrence: None)
  Receive Date: 20060711
  Receipt Date: 20060630
  Transmission Date: 20061208
  Serious: Yes (Hospitalization)
  Sender: FDA-Public Use
  Company Number: IE-ROCHE-453860

PATIENT
  Age: 49 Year
  Sex: Male

DRUGS (11)
  1. XENICAL [Suspect]
     Indication: DRUG USE FOR UNKNOWN INDICATION
     Route: 048
  2. CARVEDILOL [Suspect]
     Indication: DRUG USE FOR UNKNOWN INDICATION
     Route: 065
  3. SC-66110 [Concomitant]
  4. BUMETANIDE [Concomitant]
  5. BURAM [Concomitant]
  6. ASPIRIN [Concomitant]
  7. ATORVASTATIN CALCIUM [Concomitant]
  8. EZETIMIBE [Concomitant]
  9. NICORANDIL [Concomitant]
  10. WARFARIN SODIUM [Concomitant]
  11. VALSARTAN [Concomitant]

REACTIONS (1)
  - CHEST PAIN [None]
